FAERS Safety Report 8349108 (Version 6)
Quarter: 2014Q3

REPORT INFORMATION
  Report Type: Spontaneous
  Country: HR (occurrence: HR)
  Receive Date: 20120123
  Receipt Date: 20140728
  Transmission Date: 20150326
  Serious: Yes (Hospitalization, Other)
  Sender: FDA-Public Use
  Company Number: PHHY2012HR003598

PATIENT
  Age: 78 Year
  Sex: Female
  Weight: 74 kg

DRUGS (11)
  1. CILAZIL PLUS [Concomitant]
     Dosage: 1 DF, (0.5 TABLET IN THE MORNING AND 0.5 TABLET IN THE EVENING)
     Dates: start: 201209
  2. MODURETIC 5-50 [Suspect]
     Active Substance: AMILORIDE HYDROCHLORIDE\HYDROCHLOROTHIAZIDE
     Indication: ENDOLYMPHATIC HYDROPS
     Dosage: 1 DF, QD
     Route: 048
     Dates: start: 20110715
  3. MODURETIC 5-50 [Suspect]
     Active Substance: AMILORIDE HYDROCHLORIDE\HYDROCHLOROTHIAZIDE
     Dosage: 1.5 DF, QD
     Route: 048
     Dates: end: 201112
  4. BETASERC [Concomitant]
     Active Substance: BETAHISTINE
     Indication: DEAFNESS
     Dates: start: 20110715
  5. BYOL COR [Concomitant]
     Active Substance: BISOPROLOL FUMARATE
  6. CILAZIL PLUS [Concomitant]
     Dosage: 0.5 DF, UNK
     Dates: start: 2004, end: 201209
  7. CONCOR COR [Concomitant]
     Active Substance: BISOPROLOL FUMARATE
     Dosage: 1 DF IN THE MORNING AND 1/2 TBLET IN THE EVENING
     Dates: start: 201209
  8. PIRAMIL [Concomitant]
  9. PIGREL [Concomitant]
  10. GLURENORM [Concomitant]
     Indication: DIABETES MELLITUS
     Dosage: 1 DF, QD
     Dates: start: 2005
  11. CONCOR COR [Concomitant]
     Active Substance: BISOPROLOL FUMARATE
     Dosage: 1 DF, QD
     Dates: start: 2004, end: 201209

REACTIONS (30)
  - Loss of consciousness [Recovered/Resolved]
  - Swollen tongue [Unknown]
  - Haematoma [Unknown]
  - Hyperhidrosis [Recovered/Resolved]
  - Blood pressure fluctuation [Unknown]
  - Hepatic cyst [Not Recovered/Not Resolved]
  - Muscle spasms [Recovered/Resolved]
  - Abdominal pain [Recovered/Resolved]
  - Skin odour abnormal [Recovered/Resolved]
  - Hiccups [Recovered/Resolved]
  - Pruritus [Recovered/Resolved]
  - Rash [Unknown]
  - Nocturia [Recovered/Resolved]
  - Joint swelling [Unknown]
  - Syncope [Recovered/Resolved]
  - Hypertension [Not Recovered/Not Resolved]
  - Pain in extremity [Recovered/Resolved]
  - Transient ischaemic attack [Recovered/Resolved]
  - Somnolence [Recovered/Resolved]
  - Paraesthesia [Recovered/Resolved]
  - Arthralgia [Recovered/Resolved]
  - Erythema [Unknown]
  - Coronary artery stenosis [Unknown]
  - Fatigue [Recovered/Resolved]
  - Flatulence [Recovered/Resolved]
  - Confusional state [Recovered/Resolved]
  - Speech disorder [Unknown]
  - Apathy [Recovered/Resolved]
  - Malaise [Unknown]
  - Diarrhoea [Recovered/Resolved]

NARRATIVE: CASE EVENT DATE: 20110801
